FAERS Safety Report 9263057 (Version 1)
Quarter: 2013Q2

REPORT INFORMATION
  Report Type: Spontaneous
  Country: US (occurrence: US)
  Receive Date: 20130430
  Receipt Date: 20130430
  Transmission Date: 20140414
  Serious: No
  Sender: FDA-Public Use
  Company Number: US-ELI_LILLY_AND_COMPANY-US201304008170

PATIENT
  Age: 54 Year
  Sex: Female
  Weight: 99.32 kg

DRUGS (1)
  1. HUMALOG LISPRO [Suspect]

REACTIONS (3)
  - Blood glucose increased [Recovered/Resolved]
  - Visual impairment [Not Recovered/Not Resolved]
  - Blood glucose decreased [Unknown]
